FAERS Safety Report 4830721-8 (Version None)
Quarter: 2005Q4

REPORT INFORMATION
  Report Type: 
  Country: None (occurrence: None)
  Receive Date: 20051114
  Receipt Date: 20051109
  Transmission Date: 20060501
  Serious: Yes (Life-Threatening, Hospitalization, Other)
  Sender: FDA-Public Use
  Company Number: HQWYE438007NOV05

PATIENT
  Age: 88 Year
  Sex: Male

DRUGS (5)
  1. GEMCITABINE, CONTROL FOR TEMSIROLIMUS (GEMCITABINE, CONTROL FOR TEMSIR [Suspect]
     Indication: MANTLE CELL LYMPHOMA
     Dates: start: 20050621
  2. LASIX [Concomitant]
  3. PANTOPRAZOLE SODIUM [Concomitant]
  4. BETAHISTINE (BETAHISTINE) [Concomitant]
  5. ACETYLSALICYLIC ACID SRT [Concomitant]

REACTIONS (6)
  - ABDOMINAL PAIN [None]
  - ASPARTATE AMINOTRANSFERASE INCREASED [None]
  - CARDIAC FAILURE [None]
  - HAEMATOCRIT DECREASED [None]
  - HAEMOGLOBIN DECREASED [None]
  - PLEURAL DISORDER [None]
